FAERS Safety Report 15511585 (Version 1)
Quarter: 2018Q4

REPORT INFORMATION
  Report Type: Spontaneous
  Country: US (occurrence: US)
  Receive Date: 20181010
  Receipt Date: 20181010
  Transmission Date: 20190205
  Serious: Yes (Other)
  Sender: FDA-Public Use
  Company Number: None

PATIENT
  Age: 65 Year
  Sex: Female

DRUGS (2)
  1. WARFARIN BUMEX [Concomitant]
  2. TADALAFIL TAB 20 MG [Suspect]
     Active Substance: TADALAFIL
     Route: 048
     Dates: start: 201808

REACTIONS (3)
  - Peripheral swelling [None]
  - Pulmonary oedema [None]
  - Dyspnoea [None]

NARRATIVE: CASE EVENT DATE: 20181003
